FAERS Safety Report 14995831 (Version 1)
Quarter: 2018Q2

REPORT INFORMATION
  Report Type: Spontaneous
  Country: US (occurrence: US)
  Receive Date: 20180522
  Receipt Date: 20180522
  Transmission Date: 20180711
  Serious: Yes (Disabling)
  Sender: FDA-Public Use
  Company Number: None

PATIENT
  Age: 47 Year
  Sex: Female
  Weight: 101.25 kg

DRUGS (3)
  1. VALSARTAN. [Concomitant]
     Active Substance: VALSARTAN
  2. MELATONIN [Concomitant]
     Active Substance: MELATONIN
  3. BUPROPION HCL XL 150 MG [Suspect]
     Active Substance: BUPROPION HYDROCHLORIDE
     Indication: DEPRESSION
     Route: 048
     Dates: start: 20080101, end: 20180101

REACTIONS (16)
  - Depression [None]
  - Fatigue [None]
  - Rash [None]
  - Ovarian cyst [None]
  - Anger [None]
  - Pain in extremity [None]
  - Pernicious anaemia [None]
  - Iron deficiency anaemia [None]
  - Gait disturbance [None]
  - Irritability [None]
  - Arthralgia [None]
  - Anxiety [None]
  - Personal relationship issue [None]
  - Paraesthesia [None]
  - Aggression [None]
  - Fear [None]

NARRATIVE: CASE EVENT DATE: 20171201
